FAERS Safety Report 8988982 (Version 1)
Quarter: 2012Q4

REPORT INFORMATION
  Report Type: Spontaneous
  Country: US (occurrence: None)
  Receive Date: 20121224
  Receipt Date: 20121224
  Transmission Date: 20130627
  Serious: Yes (Hospitalization)
  Sender: FDA-Public Use
  Company Number: None

PATIENT
  Age: 66 Year
  Sex: Male
  Weight: 120.5 kg

DRUGS (1)
  1. HYDROMORPHONE [Suspect]
     Indication: PAIN
     Dosage: 0.4 MG ONCE IV
     Route: 042
     Dates: start: 20121215, end: 20121215

REACTIONS (4)
  - Sedation [None]
  - Respiratory depression [None]
  - Apnoea [None]
  - Hypopnoea [None]
